FAERS Safety Report 23137542 (Version 1)
Quarter: 2023Q4

REPORT INFORMATION
  Report Type: Spontaneous
  Country: US (occurrence: US)
  Receive Date: 20231102
  Receipt Date: 20231102
  Transmission Date: 20240109
  Serious: Yes (Disabling, Other)
  Sender: FDA-Public Use
  Company Number: US-PURDUE PHARMA-USA-2023-0304226

PATIENT
  Sex: Male

DRUGS (1)
  1. OXYCONTIN [Suspect]
     Active Substance: OXYCODONE HYDROCHLORIDE
     Indication: Product used for unknown indication
     Dosage: UNK
     Route: 048

REACTIONS (8)
  - Drug dependence [Unknown]
  - Emotional distress [Unknown]
  - Discomfort [Unknown]
  - Illness [Unknown]
  - Stress [Unknown]
  - Pain [Unknown]
  - Anxiety [Unknown]
  - Unevaluable event [Unknown]
